FAERS Safety Report 9189896 (Version 2)
Quarter: 2013Q1

REPORT INFORMATION
  Report Type: Spontaneous
  Country: FR (occurrence: FR)
  Receive Date: 20130326
  Receipt Date: 20130328
  Transmission Date: 20140127
  Serious: Yes (Death, Life-Threatening)
  Sender: FDA-Public Use
  Company Number: FR-PFIZER INC-2013093107

PATIENT
  Age: 53 Year
  Sex: Male

DRUGS (14)
  1. REVATIO [Suspect]
     Indication: PULMONARY HYPERTENSION
     Dosage: 20 MG, 3X/DAY
     Dates: start: 200907
  2. ISENTRESS [Suspect]
     Indication: HIV TEST POSITIVE
     Dosage: 400 MG EVERY 2 DAYS
     Route: 048
     Dates: start: 20100129, end: 20100304
  3. SUSTIVA [Suspect]
     Indication: HIV TEST POSITIVE
     Dosage: 600 MG, DAILY
     Route: 048
     Dates: start: 2004
  4. TELZIR [Suspect]
     Indication: HIV TEST POSITIVE
     Dosage: 700 MG, 2X/DAY
     Route: 048
     Dates: start: 2004
  5. NORVIR [Suspect]
     Indication: HIV TEST POSITIVE
     Dosage: 100 MG EVERY 2 DAYS
     Route: 048
     Dates: start: 2004
  6. GLUCOVANCE [Suspect]
     Indication: TYPE 2 DIABETES MELLITUS
     Dosage: 2 DF EVERY 2 DAYS
     Dates: start: 2005
  7. EFFEXOR [Concomitant]
     Indication: ANXIETY
     Dosage: 37.5 MG, DAILY
     Dates: start: 2005
  8. EFFEXOR [Concomitant]
     Indication: DEPRESSION
  9. ATARAX [Concomitant]
     Indication: ANXIETY
     Dosage: 100 MG, DAILY
     Dates: start: 2005
  10. ATARAX [Concomitant]
     Indication: DEPRESSION
  11. RISPERDAL [Concomitant]
     Indication: ANXIETY
     Dosage: 4 MG, 2X/DAY
     Dates: start: 2005
  12. RISPERDAL [Concomitant]
     Indication: DEPRESSION
  13. MEPRONIZINE [Concomitant]
     Indication: ANXIETY
     Dosage: 1 DF, DAILY
     Dates: start: 2005
  14. MEPRONIZINE [Concomitant]
     Indication: DEPRESSION

REACTIONS (2)
  - Hyperlactacidaemia [Fatal]
  - Metabolic acidosis [Fatal]
